FAERS Safety Report 14471696 (Version 1)
Quarter: 2018Q1

REPORT INFORMATION
  Report Type: Spontaneous
  Country: US (occurrence: US)
  Receive Date: 20180131
  Receipt Date: 20180131
  Transmission Date: 20180509
  Serious: Yes (Other)
  Sender: FDA-Public Use
  Company Number: US-BAYER-2018-016552

PATIENT
  Age: 74 Year
  Sex: Female
  Weight: 77 kg

DRUGS (3)
  1. CORICIDIN HBP CHEST CONGESTION AND COUGH [Suspect]
     Active Substance: DEXTROMETHORPHAN HYDROBROMIDE\GUAIFENESIN
     Indication: ALLERGIC RESPIRATORY SYMPTOM
     Dosage: 2 DF, Q4HR
     Route: 048
     Dates: start: 201707, end: 201801
  2. BABY ASPIRIN [Concomitant]
     Active Substance: ASPIRIN
  3. CORICIDIN HBP CHEST CONGESTION AND COUGH [Suspect]
     Active Substance: DEXTROMETHORPHAN HYDROBROMIDE\GUAIFENESIN
     Indication: NASOPHARYNGITIS

REACTIONS (5)
  - Melaena [Recovered/Resolved]
  - Haematochezia [Recovered/Resolved]
  - Faeces discoloured [Recovered/Resolved]
  - Melaena [Recovered/Resolved]
  - Faeces discoloured [Recovered/Resolved]

NARRATIVE: CASE EVENT DATE: 201707
